FAERS Safety Report 15457576 (Version 1)
Quarter: 2018Q4

REPORT INFORMATION
  Report Type: Spontaneous
  Country: US (occurrence: US)
  Receive Date: 20181003
  Receipt Date: 20181003
  Transmission Date: 20190204
  Serious: No
  Sender: FDA-Public Use
  Company Number: US-AMGEN-USASP2018135813

PATIENT
  Age: 59 Year
  Sex: Female

DRUGS (2)
  1. PREDNISONE. [Suspect]
     Active Substance: PREDNISONE
     Indication: OBSTRUCTIVE AIRWAYS DISORDER
     Dosage: UNK
     Route: 065
     Dates: start: 201809, end: 20180925
  2. AIMOVIG [Suspect]
     Active Substance: ERENUMAB-AOOE
     Indication: MIGRAINE
     Dosage: UNK UNK, QMO
     Route: 065
     Dates: start: 20180817

REACTIONS (3)
  - Paraesthesia [Unknown]
  - Obstructive airways disorder [Unknown]
  - Drug ineffective [Unknown]

NARRATIVE: CASE EVENT DATE: 2018
